FAERS Safety Report 8489496-6 (Version None)
Quarter: 2012Q3

REPORT INFORMATION
  Report Type: 
  Country: None (occurrence: None)
  Receive Date: 20120705
  Receipt Date: 20120625
  Transmission Date: 20120928
  Serious: Yes (Hospitalization)
  Sender: FDA-Public Use
  Company Number: US-ASTRAZENECA-2012SE42846

PATIENT
  Age: 47 Year
  Sex: Male
  Weight: 72.6 kg

DRUGS (6)
  1. ADVAIR DISKUS 100/50 [Concomitant]
     Indication: ASTHMA
  2. PRILOSEC OTC [Suspect]
     Indication: GASTROOESOPHAGEAL REFLUX DISEASE
     Route: 048
     Dates: start: 20030101
  3. PRILOSEC [Suspect]
     Indication: GASTROOESOPHAGEAL REFLUX DISEASE
     Route: 048
  4. VENTOLIN [Concomitant]
     Indication: ASTHMA
  5. NEXIUM [Suspect]
     Indication: GASTROOESOPHAGEAL REFLUX DISEASE
     Route: 048
  6. ALBUTEROL [Concomitant]
     Indication: ASTHMA
     Dosage: AS REQUIRED

REACTIONS (2)
  - COUGH [None]
  - PANCREATITIS [None]
